FAERS Safety Report 21953383 (Version 1)
Quarter: 2023Q1

REPORT INFORMATION
  Report Type: Spontaneous
  Country: CA (occurrence: CA)
  Receive Date: 20230204
  Receipt Date: 20230204
  Transmission Date: 20230418
  Serious: Yes (Life-Threatening)
  Sender: FDA-Public Use
  Company Number: None

PATIENT
  Age: 17 Year
  Sex: Female
  Weight: 105 kg

DRUGS (41)
  1. ETOPOSIDE [Suspect]
     Active Substance: ETOPOSIDE
     Indication: Surgical preconditioning
     Route: 042
  2. METHOTREXATE [Suspect]
     Active Substance: METHOTREXATE
     Indication: Prophylaxis
     Dosage: INTRAVENOUS DRIP
  3. ACETAMINOPHEN [Concomitant]
     Active Substance: ACETAMINOPHEN
  4. ALTEPLASE [Concomitant]
     Active Substance: ALTEPLASE
     Route: 042
  5. AMITRIPTYLINE [Concomitant]
     Active Substance: AMITRIPTYLINE
  6. CALCIUM CARBONATE [Concomitant]
     Active Substance: CALCIUM CARBONATE
  7. CEFTAZIDIME [Concomitant]
     Active Substance: CEFTAZIDIME
     Dosage: POWDER FOR SOLUTION
  8. CETIRIZINE [Concomitant]
     Active Substance: CETIRIZINE HYDROCHLORIDE
     Route: 065
  9. CHOLECALCIFEROL [Concomitant]
     Active Substance: CHOLECALCIFEROL
  10. CYCLOSPORINE [Concomitant]
     Active Substance: CYCLOSPORINE
     Route: 065
  11. DEXAMETHASONE [Concomitant]
     Active Substance: DEXAMETHASONE
     Route: 065
  12. DIMENHYDRINATE [Concomitant]
     Active Substance: DIMENHYDRINATE
  13. DIPHENHYDRAMINE [Concomitant]
     Active Substance: DIPHENHYDRAMINE
  14. ENOXAPARIN [Concomitant]
     Active Substance: ENOXAPARIN
  15. FAMOTIDINE [Concomitant]
     Active Substance: FAMOTIDINE
  16. FILGRASTIM [Concomitant]
     Active Substance: FILGRASTIM
  17. FLUCONAZOLE [Concomitant]
     Active Substance: FLUCONAZOLE
  18. FUROSEMIDE [Concomitant]
     Active Substance: FUROSEMIDE
     Route: 065
  19. GRANISETRON [Concomitant]
     Active Substance: GRANISETRON
  20. HEPARIN SODIUM [Concomitant]
     Active Substance: HEPARIN SODIUM
     Route: 042
  21. LANSOPRAZOLE [Concomitant]
     Active Substance: LANSOPRAZOLE
     Dosage: CAPSULE, DELAYED RELEASE
  22. LETERMOVIR [Concomitant]
     Active Substance: LETERMOVIR
  23. LEUPROLIDE [Concomitant]
     Active Substance: LEUPROLIDE
  24. LORAZEPAM [Concomitant]
     Active Substance: LORAZEPAM
     Route: 065
  25. MAGNESIUM SULFATE [Concomitant]
     Active Substance: MAGNESIUM SULFATE
  26. METOCLOPRAMIDE [Concomitant]
     Active Substance: METOCLOPRAMIDE
  27. MORPHINE [Concomitant]
     Active Substance: MORPHINE
  28. MYCAMINE [Concomitant]
     Active Substance: MICAFUNGIN SODIUM
     Dosage: POWDER FOR SOLUTION INTRAVENOUS
  29. NABILONE [Concomitant]
     Active Substance: NABILONE
  30. NIFEDIPINE [Concomitant]
     Active Substance: NIFEDIPINE
  31. NORETHINDRONE [Concomitant]
     Active Substance: NORETHINDRONE
  32. OLANZAPINE [Concomitant]
     Active Substance: OLANZAPINE
  33. ONDANSETRON [Concomitant]
     Active Substance: ONDANSETRON
  34. PANTOPRAZOLE [Concomitant]
     Active Substance: PANTOPRAZOLE
  35. POLYETHYLENE GLYCOL [Concomitant]
     Active Substance: POLYETHYLENE GLYCOL
  36. PREGABALIN [Concomitant]
     Active Substance: PREGABALIN
  37. PROTAMINE SULFATE [Concomitant]
     Active Substance: PROTAMINE SULFATE
     Dosage: SOLUTION INTRAVENOUS
  38. TACROLIMUS [Concomitant]
     Active Substance: TACROLIMUS
  39. TRANEXAMIC ACID [Concomitant]
     Active Substance: TRANEXAMIC ACID
  40. URSODIOL [Concomitant]
     Active Substance: URSODIOL
  41. VALACYCLOVIR HYDROCHLORIDE [Concomitant]
     Active Substance: VALACYCLOVIR HYDROCHLORIDE

REACTIONS (4)
  - Aplastic anaemia [Recovered/Resolved]
  - Febrile neutropenia [Recovered/Resolved]
  - Mucosal inflammation [Recovered/Resolved]
  - Transfusion [Unknown]
